FAERS Safety Report 8988353 (Version 1)
Quarter: 2012Q4

REPORT INFORMATION
  Report Type: Spontaneous
  Country: US (occurrence: None)
  Receive Date: 20121220
  Receipt Date: 20121220
  Transmission Date: 20130627
  Serious: No
  Sender: FDA-Public Use
  Company Number: None

PATIENT
  Age: 49 Year
  Sex: Female
  Weight: 99.79 kg

DRUGS (1)
  1. ZETIA [Suspect]
     Indication: LDL RAISED
     Route: 048
     Dates: start: 20121217, end: 20121218

REACTIONS (3)
  - Anger [None]
  - Aggression [None]
  - Tremor [None]
